FAERS Safety Report 5314027-9 (Version None)
Quarter: 2007Q2

REPORT INFORMATION
  Report Type: 
  Country: None (occurrence: None)
  Receive Date: 20070501
  Receipt Date: 20070417
  Transmission Date: 20071010
  Serious: Yes (Other)
  Sender: FDA-Public Use
  Company Number: JP-ROCHE-435791

PATIENT
  Age: 10 Year
  Sex: Male
  Weight: 27 kg

DRUGS (3)
  1. TAMIFLU [Suspect]
     Dosage: FORM: DRY SYRUP.
     Route: 048
     Dates: start: 20060116, end: 20060117
  2. ASVERIN [Concomitant]
     Route: 048
     Dates: start: 20060116, end: 20060120
  3. MUCOSOLVAN [Concomitant]
     Route: 048
     Dates: start: 20060116, end: 20060120

REACTIONS (1)
  - ABNORMAL BEHAVIOUR [None]
